FAERS Safety Report 14353980 (Version 3)
Quarter: 2018Q1

REPORT INFORMATION
  Report Type: Report from Study
  Country: US (occurrence: US)
  Receive Date: 20180105
  Receipt Date: 20180302
  Transmission Date: 20180509
  Serious: Yes (Death, Hospitalization)
  Sender: FDA-Public Use
  Company Number: US-ROCHE-2047762

PATIENT
  Age: 72 Year
  Sex: Male
  Weight: 72 kg

DRUGS (28)
  1. ATEZOLIZUMAB. [Suspect]
     Active Substance: ATEZOLIZUMAB
     Indication: NON-SMALL CELL LUNG CANCER
     Dosage: 60 MINUTE IV INFUSION ON FIRST ADMINISTRATION, THEN OVER 30 MINUTES SUBSEQUENTLY
     Route: 042
     Dates: start: 20170912
  2. SUCCINYLCHOLINE [Concomitant]
     Active Substance: SUCCINYLCHOLINE
     Route: 042
     Dates: start: 20171226, end: 20171226
  3. CARBOPLATIN. [Suspect]
     Active Substance: CARBOPLATIN
     Indication: NON-SMALL CELL LUNG CANCER
     Dosage: CARBOPLATIN AUC=5 ADMINISTERED AS A 30 MINUTE IV INFUSION IMMEDIATELY AFTER NAB-PACLITAXEL
     Route: 042
     Dates: start: 20170912, end: 20171024
  4. ACETAMINOPHEN. [Concomitant]
     Active Substance: ACETAMINOPHEN
     Indication: PAIN
     Route: 065
     Dates: start: 20171222, end: 20171226
  5. MAGNESIUM SULPHATE [Concomitant]
     Active Substance: MAGNESIUM SULFATE
     Indication: HYPOMAGNESAEMIA
     Route: 065
     Dates: start: 20171222, end: 20171222
  6. QUETIAPINE. [Concomitant]
     Active Substance: QUETIAPINE
     Indication: DELIRIUM
     Route: 065
     Dates: start: 20171223, end: 20171224
  7. CARBOPLATIN. [Suspect]
     Active Substance: CARBOPLATIN
     Dosage: CARBOPLATIN AUC=4 ADMINISTERED AS A 30 MINUTE IV INFUSION IMMEDIATELY AFTER NAB-PACLITAXEL
     Route: 042
     Dates: start: 20171030
  8. NAB-PACLITAXEL [Suspect]
     Active Substance: PACLITAXEL
     Dosage: NAB-PACLITAXEL 75 MG/M2 WILL BE ADMINISTERED AS A 30 MINUTE IV INFUSION
     Route: 042
     Dates: start: 20171030
  9. DOCUSATE SODIUM. [Concomitant]
     Active Substance: DOCUSATE SODIUM
     Indication: CONSTIPATION
     Route: 048
     Dates: start: 20171223, end: 20171226
  10. INSULIN ASPART [Concomitant]
     Active Substance: INSULIN ASPART
     Indication: HYPERGLYCAEMIA
     Route: 042
     Dates: start: 20171222, end: 20171222
  11. ALBUTEROL INHALATION SOLUTION [Concomitant]
     Active Substance: ALBUTEROL
     Route: 065
     Dates: start: 20171222, end: 20171226
  12. FENTANYL CITRATE. [Concomitant]
     Active Substance: FENTANYL CITRATE
     Indication: PAIN
     Route: 042
     Dates: start: 20171226, end: 20171226
  13. PANTOPRAZOLE [Concomitant]
     Active Substance: PANTOPRAZOLE
     Indication: GASTROOESOPHAGEAL REFLUX DISEASE
     Route: 048
     Dates: start: 20171223, end: 20171223
  14. PANTOPRAZOLE [Concomitant]
     Active Substance: PANTOPRAZOLE
     Route: 048
     Dates: start: 20171224, end: 20171226
  15. SENNA [Concomitant]
     Active Substance: SENNA LEAF\SENNOSIDES\SENNOSIDES A AND B
     Indication: CONSTIPATION
     Route: 048
     Dates: start: 20171223, end: 20171226
  16. VANCOMYCIN [Concomitant]
     Active Substance: VANCOMYCIN
     Dosage: 1500 MG IN D5W 250ML.
     Route: 042
     Dates: start: 20171225, end: 20171226
  17. NAB-PACLITAXEL [Suspect]
     Active Substance: PACLITAXEL
     Indication: NON-SMALL CELL LUNG CANCER
     Dosage: NAB-PACLITAXEL 100 MG/M2 WILL BE ADMINISTERED AS A 30 MINUTE IV INFUSION
     Route: 042
     Dates: start: 20170912, end: 20171024
  18. LABETALOL [Concomitant]
     Active Substance: LABETALOL\LABETALOL HYDROCHLORIDE
     Route: 065
     Dates: start: 20171224, end: 20171226
  19. PANTOPRAZOLE [Concomitant]
     Active Substance: PANTOPRAZOLE
     Route: 042
     Dates: start: 20171226, end: 20171226
  20. QUETIAPINE. [Concomitant]
     Active Substance: QUETIAPINE
     Indication: AGITATION
     Route: 065
     Dates: start: 20171223, end: 20171225
  21. TAMSULOSIN [Concomitant]
     Active Substance: TAMSULOSIN
     Route: 048
  22. TIOTROPIUM [Concomitant]
     Active Substance: TIOTROPIUM
     Indication: CHRONIC OBSTRUCTIVE PULMONARY DISEASE
     Route: 050
     Dates: start: 20171221, end: 20171226
  23. HYDRALAZINE [Concomitant]
     Active Substance: HYDRALAZINE HYDROCHLORIDE
     Indication: HYPERTENSION
     Route: 042
     Dates: start: 20171222, end: 20171222
  24. LIDOCAINE. [Concomitant]
     Active Substance: LIDOCAINE
     Indication: PAIN
     Route: 065
     Dates: start: 20171221, end: 20171226
  25. SODIUM CHLORIDE. [Concomitant]
     Active Substance: SODIUM CHLORIDE
     Indication: WHEEZING
     Route: 050
     Dates: start: 20171222, end: 20171224
  26. PIPERACILLIN TAZOBACTAM KABI [Concomitant]
     Active Substance: PIPERACILLIN SODIUM\TAZOBACTAM SODIUM
     Indication: INFECTION
     Route: 042
     Dates: start: 20171225, end: 20171226
  27. QUETIAPINE. [Concomitant]
     Active Substance: QUETIAPINE
     Route: 048
     Dates: start: 20171224, end: 20171226
  28. TIOTROPIUM [Concomitant]
     Active Substance: TIOTROPIUM
     Indication: WHEEZING

REACTIONS (13)
  - Pain [Recovered/Resolved]
  - Pneumonia [Recovered/Resolved]
  - Acute kidney injury [Recovered/Resolved]
  - Hyperkalaemia [Recovered/Resolved]
  - Alanine aminotransferase increased [Recovered/Resolved]
  - Ventricular fibrillation [Fatal]
  - Respiratory failure [Fatal]
  - Aspartate aminotransferase increased [Recovered/Resolved]
  - Hypernatraemia [Recovered/Resolved]
  - Hypotension [Recovered/Resolved]
  - Respiratory acidosis [Fatal]
  - Organ failure [Fatal]
  - Pneumothorax [Recovered/Resolved]

NARRATIVE: CASE EVENT DATE: 20171222
